FAERS Safety Report 25566575 (Version 1)
Quarter: 2025Q3

REPORT INFORMATION
  Report Type: Spontaneous
  Country: GB (occurrence: GB)
  Receive Date: 20250716
  Receipt Date: 20250716
  Transmission Date: 20251020
  Serious: Yes (Disabling)
  Sender: MYLAN
  Company Number: GB-MHRA-TPP21117717C24559437YC1752161617137

PATIENT
  Age: 87 Year
  Sex: Female
  Weight: 61 kg

DRUGS (28)
  1. DOXAZOSIN [Suspect]
     Active Substance: DOXAZOSIN MESYLATE
     Indication: Ill-defined disorder
     Dates: start: 20250521, end: 20250618
  2. DOXAZOSIN [Suspect]
     Active Substance: DOXAZOSIN MESYLATE
     Route: 065
     Dates: start: 20250521, end: 20250618
  3. DOXAZOSIN [Suspect]
     Active Substance: DOXAZOSIN MESYLATE
     Route: 065
     Dates: start: 20250521, end: 20250618
  4. DOXAZOSIN [Suspect]
     Active Substance: DOXAZOSIN MESYLATE
     Dates: start: 20250521, end: 20250618
  5. LANSOPRAZOLE [Concomitant]
     Active Substance: LANSOPRAZOLE
     Indication: Ill-defined disorder
     Dosage: 1 DOSAGE FORM, QD (TAKE ONE ONCE DAILY)
     Dates: start: 20250521, end: 20250618
  6. LANSOPRAZOLE [Concomitant]
     Active Substance: LANSOPRAZOLE
     Dosage: 1 DOSAGE FORM, QD (TAKE ONE ONCE DAILY)
     Route: 065
     Dates: start: 20250521, end: 20250618
  7. LANSOPRAZOLE [Concomitant]
     Active Substance: LANSOPRAZOLE
     Dosage: 1 DOSAGE FORM, QD (TAKE ONE ONCE DAILY)
     Route: 065
     Dates: start: 20250521, end: 20250618
  8. LANSOPRAZOLE [Concomitant]
     Active Substance: LANSOPRAZOLE
     Dosage: 1 DOSAGE FORM, QD (TAKE ONE ONCE DAILY)
     Dates: start: 20250521, end: 20250618
  9. DICLOFENAC SODIUM [Concomitant]
     Active Substance: DICLOFENAC SODIUM
     Indication: Ill-defined disorder
     Dosage: UNK UNK, BID (APPLY TWICE DAILY FOR 8 WEEKS)
     Dates: start: 20250710
  10. DICLOFENAC SODIUM [Concomitant]
     Active Substance: DICLOFENAC SODIUM
     Dosage: UNK UNK, BID (APPLY TWICE DAILY FOR 8 WEEKS)
     Route: 065
     Dates: start: 20250710
  11. DICLOFENAC SODIUM [Concomitant]
     Active Substance: DICLOFENAC SODIUM
     Dosage: UNK UNK, BID (APPLY TWICE DAILY FOR 8 WEEKS)
     Route: 065
     Dates: start: 20250710
  12. DICLOFENAC SODIUM [Concomitant]
     Active Substance: DICLOFENAC SODIUM
     Dosage: UNK UNK, BID (APPLY TWICE DAILY FOR 8 WEEKS)
     Dates: start: 20250710
  13. ATORVASTATIN [Concomitant]
     Active Substance: ATORVASTATIN
     Indication: Ill-defined disorder
     Dosage: 1 DOSAGE FORM, QD (TAKE ONE DAILY)
     Dates: start: 20240710
  14. ATORVASTATIN [Concomitant]
     Active Substance: ATORVASTATIN
     Dosage: 1 DOSAGE FORM, QD (TAKE ONE DAILY)
     Route: 065
     Dates: start: 20240710
  15. ATORVASTATIN [Concomitant]
     Active Substance: ATORVASTATIN
     Dosage: 1 DOSAGE FORM, QD (TAKE ONE DAILY)
     Route: 065
     Dates: start: 20240710
  16. ATORVASTATIN [Concomitant]
     Active Substance: ATORVASTATIN
     Dosage: 1 DOSAGE FORM, QD (TAKE ONE DAILY)
     Dates: start: 20240710
  17. HYDROCORTISONE\MICONAZOLE NITRATE [Concomitant]
     Active Substance: HYDROCORTISONE\MICONAZOLE NITRATE
     Indication: Ill-defined disorder
     Dosage: UNK UNK, BIWEEKLY (APPLY TWICE A WEEK AS PER GYNAE CLINIC)
     Dates: start: 20240711, end: 20250529
  18. HYDROCORTISONE\MICONAZOLE NITRATE [Concomitant]
     Active Substance: HYDROCORTISONE\MICONAZOLE NITRATE
     Dosage: UNK UNK, BIWEEKLY (APPLY TWICE A WEEK AS PER GYNAE CLINIC)
     Route: 065
     Dates: start: 20240711, end: 20250529
  19. HYDROCORTISONE\MICONAZOLE NITRATE [Concomitant]
     Active Substance: HYDROCORTISONE\MICONAZOLE NITRATE
     Dosage: UNK UNK, BIWEEKLY (APPLY TWICE A WEEK AS PER GYNAE CLINIC)
     Route: 065
     Dates: start: 20240711, end: 20250529
  20. HYDROCORTISONE\MICONAZOLE NITRATE [Concomitant]
     Active Substance: HYDROCORTISONE\MICONAZOLE NITRATE
     Dosage: UNK UNK, BIWEEKLY (APPLY TWICE A WEEK AS PER GYNAE CLINIC)
     Dates: start: 20240711, end: 20250529
  21. AMITRIPTYLINE HYDROCHLORIDE [Concomitant]
     Active Substance: AMITRIPTYLINE HYDROCHLORIDE
     Indication: Ill-defined disorder
     Dosage: 10 MILLIGRAM, PM (TAKE ONE TABLET AT NIGHT (10MG))
     Dates: start: 20240830
  22. AMITRIPTYLINE HYDROCHLORIDE [Concomitant]
     Active Substance: AMITRIPTYLINE HYDROCHLORIDE
     Dosage: 10 MILLIGRAM, PM (TAKE ONE TABLET AT NIGHT (10MG))
     Route: 065
     Dates: start: 20240830
  23. AMITRIPTYLINE HYDROCHLORIDE [Concomitant]
     Active Substance: AMITRIPTYLINE HYDROCHLORIDE
     Dosage: 10 MILLIGRAM, PM (TAKE ONE TABLET AT NIGHT (10MG))
     Route: 065
     Dates: start: 20240830
  24. AMITRIPTYLINE HYDROCHLORIDE [Concomitant]
     Active Substance: AMITRIPTYLINE HYDROCHLORIDE
     Dosage: 10 MILLIGRAM, PM (TAKE ONE TABLET AT NIGHT (10MG))
     Dates: start: 20240830
  25. LERCANIDIPINE HYDROCHLORIDE [Concomitant]
     Active Substance: LERCANIDIPINE HYDROCHLORIDE
     Indication: Ill-defined disorder
     Dosage: 1 DOSAGE FORM, QD (TAKE ONE DAILY)
     Dates: start: 20241010
  26. LERCANIDIPINE HYDROCHLORIDE [Concomitant]
     Active Substance: LERCANIDIPINE HYDROCHLORIDE
     Dosage: 1 DOSAGE FORM, QD (TAKE ONE DAILY)
     Route: 065
     Dates: start: 20241010
  27. LERCANIDIPINE HYDROCHLORIDE [Concomitant]
     Active Substance: LERCANIDIPINE HYDROCHLORIDE
     Dosage: 1 DOSAGE FORM, QD (TAKE ONE DAILY)
     Route: 065
     Dates: start: 20241010
  28. LERCANIDIPINE HYDROCHLORIDE [Concomitant]
     Active Substance: LERCANIDIPINE HYDROCHLORIDE
     Dosage: 1 DOSAGE FORM, QD (TAKE ONE DAILY)
     Dates: start: 20241010

REACTIONS (2)
  - Lethargy [Recovered/Resolved]
  - Dizziness [Recovered/Resolved]
